FAERS Safety Report 8507737-3 (Version None)
Quarter: 2012Q3

REPORT INFORMATION
  Report Type: 
  Country: None (occurrence: None)
  Receive Date: 20120713
  Receipt Date: 20120705
  Transmission Date: 20120928
  Serious: Yes (Other)
  Sender: FDA-Public Use
  Company Number: CH-009507513-1207CHE001654

PATIENT

DRUGS (3)
  1. TOCTINO [Suspect]
     Indication: DERMATITIS CONTACT
     Dosage: 30 MG, QD
     Route: 048
     Dates: start: 20120305, end: 20120401
  2. TOCTINO [Suspect]
     Dosage: UNK UNK, QW
     Dates: start: 20120401, end: 20120601
  3. NUVARING [Suspect]
     Indication: CONTRACEPTION
     Dosage: UNK UNK, QM
     Dates: start: 20120206

REACTIONS (3)
  - DERMATITIS CONTACT [None]
  - WEIGHT INCREASED [None]
  - INCREASED APPETITE [None]
